FAERS Safety Report 5163921-0 (Version None)
Quarter: 2006Q4

REPORT INFORMATION
  Report Type: 
  Country: None (occurrence: None)
  Receive Date: 20061124
  Receipt Date: 20061109
  Transmission Date: 20070319
  Serious: Yes (Death, Other)
  Sender: FDA-Public Use
  Company Number: 2006139093

PATIENT
  Age: 37 Year
  Sex: Female

DRUGS (4)
  1. ZIPRASIDONE HCL [Suspect]
  2. CLONAZEPAM [Suspect]
  3. ACETAMINOPHEN/DIPHENHYDRAMINE (ACETAMINOPHEN, DIPHENHYDRAMINE) [Suspect]
  4. MARIJUANA (CANNABIS) [Suspect]

REACTIONS (8)
  - ALANINE AMINOTRANSFERASE INCREASED [None]
  - ASPARTATE AMINOTRANSFERASE INCREASED [None]
  - BLOOD PRESSURE DIASTOLIC DECREASED [None]
  - CARDIAC ARREST [None]
  - COMPLETED SUICIDE [None]
  - HEPATIC NECROSIS [None]
  - PUPIL FIXED [None]
  - VOMITING [None]
